FAERS Safety Report 7703921-7 (Version None)
Quarter: 2011Q3

REPORT INFORMATION
  Report Type: 
  Country: None (occurrence: None)
  Receive Date: 20110823
  Receipt Date: 20110812
  Transmission Date: 20111222
  Serious: Yes (Other)
  Sender: FDA-Public Use
  Company Number: DE-ROCHE-778254

PATIENT
  Sex: Female
  Weight: 61 kg

DRUGS (3)
  1. XELODA [Suspect]
     Route: 048
     Dates: start: 20110423
  2. FENTANYL [Concomitant]
  3. XELODA [Suspect]
     Dosage: SINCE AN UNREPORTED DATE AND DURING 6TH CYCLE
     Route: 048

REACTIONS (4)
  - RHONCHI [None]
  - CHEST DISCOMFORT [None]
  - WOUND [None]
  - BRONCHOSPASM [None]
